FAERS Safety Report 9039442 (Version 1)
Quarter: 2013Q1

REPORT INFORMATION
  Report Type: Report from Study
  Country: US (occurrence: US)
  Receive Date: 20130129
  Receipt Date: 20130129
  Transmission Date: 20140127
  Serious: Yes (Other)
  Sender: FDA-Public Use
  Company Number: US-ABBOTT-12P-163-0935396-00

PATIENT
  Age: 63 None
  Sex: Female
  Weight: 93.07 kg

DRUGS (27)
  1. HUMIRA 40 MG/0.8 ML PEN [Suspect]
     Indication: CROHN^S DISEASE
     Route: 058
     Dates: start: 20111121, end: 20111121
  2. HUMIRA 40 MG/0.8 ML PEN [Suspect]
     Route: 058
     Dates: start: 20111205, end: 20111205
  3. HUMIRA 40 MG/0.8 ML PEN [Suspect]
     Route: 058
     Dates: start: 20111219
  4. SYNTHROID [Concomitant]
     Indication: HYPOTHYROIDISM
  5. MAGNESIUM OXIDE [Concomitant]
     Indication: PRIMARY HYPERALDOSTERONISM
  6. MAGNESIUM OXIDE [Concomitant]
     Indication: HYPERTENSION
  7. SPIRONOLACT [Concomitant]
     Indication: PRIMARY HYPERALDOSTERONISM
  8. SPIRONOLACT [Concomitant]
     Indication: HYPERTENSION
  9. AMLOD/BENAZ [Concomitant]
     Indication: PRIMARY HYPERALDOSTERONISM
  10. AMLOD/BENAZ [Concomitant]
     Indication: HYPERTENSION
  11. SIMVASTATIN [Concomitant]
     Indication: BLOOD CHOLESTEROL INCREASED
  12. PREMARIN [Concomitant]
     Indication: HORMONE REPLACEMENT THERAPY
  13. ATENOLOL [Concomitant]
     Indication: MIGRAINE
  14. AMITRIPTYLINE [Concomitant]
     Indication: ENDOMETRIOSIS
  15. AMITRIPTYLINE [Concomitant]
     Indication: CROHN^S DISEASE
  16. AMITRIPTYLINE [Concomitant]
     Indication: PAIN
  17. AMITRIPTYLINE [Concomitant]
     Indication: ABDOMINAL ADHESIONS
  18. ENDURACIN [Concomitant]
     Indication: BLOOD CHOLESTEROL INCREASED
  19. ZEGERID [Concomitant]
     Indication: GASTROOESOPHAGEAL REFLUX DISEASE
  20. ZEGERID [Concomitant]
     Indication: GASTRIC ULCER
  21. VALTREX [Concomitant]
     Indication: ORAL HERPES
  22. TYLENOL [Concomitant]
     Indication: OSTEOARTHRITIS
  23. FISH OIL [Concomitant]
     Indication: SUPPLEMENTATION THERAPY
  24. CALCIUM CITRATE [Concomitant]
     Indication: OSTEOPENIA
  25. PRESERVISION EYE VITAMINS [Concomitant]
     Indication: MACULAR DEGENERATION
  26. PRESERVISION EYE VITAMINS [Concomitant]
     Indication: FAMILIAL RISK FACTOR
  27. PRESERVISION EYE VITAMINS [Concomitant]
     Indication: PROPHYLAXIS

REACTIONS (4)
  - Sinusitis [Recovered/Resolved]
  - Female genital tract fistula [Not Recovered/Not Resolved]
  - Abdominal pain [Recovered/Resolved]
  - Diarrhoea [Recovered/Resolved]
